FAERS Safety Report 22047405 (Version 2)
Quarter: 2023Q1

REPORT INFORMATION
  Report Type: Spontaneous
  Country: JP (occurrence: JP)
  Receive Date: 20230301
  Receipt Date: 20230316
  Transmission Date: 20230417
  Serious: Yes (Death, Life-Threatening, Other)
  Sender: FDA-Public Use
  Company Number: JP-CELGENE-JPN-20211200121

PATIENT
  Age: 82 Year
  Sex: Male
  Weight: 64.4 kg

DRUGS (5)
  1. VIDAZA [Suspect]
     Active Substance: AZACITIDINE
     Indication: Acute myeloid leukaemia
     Dosage: 100 MILLIGRAM
     Route: 042
     Dates: start: 20211115, end: 20211116
  2. VIDAZA [Suspect]
     Active Substance: AZACITIDINE
     Indication: Myelodysplastic syndrome transformation
     Dosage: 100 MILLIGRAM
     Route: 042
     Dates: start: 20211117, end: 20211119
  3. VENETOCLAX [Suspect]
     Active Substance: VENETOCLAX
     Indication: Acute myeloid leukaemia
     Dosage: 200 MILLIGRAM
     Route: 048
     Dates: start: 20211115, end: 20211116
  4. VENETOCLAX [Suspect]
     Active Substance: VENETOCLAX
     Indication: Myelodysplastic syndrome transformation
     Dosage: 200 MILLIGRAM
     Route: 048
     Dates: start: 20211117, end: 20211118
  5. VENETOCLAX [Suspect]
     Active Substance: VENETOCLAX
     Dosage: 200 MILLIGRAM
     Route: 048
     Dates: start: 20211119, end: 20211121

REACTIONS (3)
  - Tumour lysis syndrome [Recovered/Resolved]
  - Cerebral haemorrhage [Fatal]
  - Hemiplegia [Fatal]

NARRATIVE: CASE EVENT DATE: 20211116
